FAERS Safety Report 8236323-8 (Version None)
Quarter: 2012Q1

REPORT INFORMATION
  Report Type: 
  Country: None (occurrence: None)
  Receive Date: 20120327
  Receipt Date: 20120315
  Transmission Date: 20120608
  Serious: Yes (Hospitalization, Other)
  Sender: FDA-Public Use
  Company Number: US-JNJFOC-20120307873

PATIENT
  Sex: Female
  Weight: 64.41 kg

DRUGS (3)
  1. REMICADE [Suspect]
     Indication: RHEUMATOID ARTHRITIS
     Route: 042
     Dates: start: 20110101
  2. REMICADE [Suspect]
     Route: 042
  3. RITUXAN [Suspect]
     Indication: RHEUMATOID ARTHRITIS
     Route: 065

REACTIONS (6)
  - MEMORY IMPAIRMENT [None]
  - ASTHMA [None]
  - DRUG INEFFECTIVE [None]
  - SYSTEMIC CANDIDA [None]
  - BLOOD IMMUNOGLOBULIN G DECREASED [None]
  - INFLAMMATION [None]
